FAERS Safety Report 19170986 (Version 1)
Quarter: 2021Q2

REPORT INFORMATION
  Report Type: Spontaneous
  Country: CN (occurrence: CN)
  Receive Date: 20210422
  Receipt Date: 20210422
  Transmission Date: 20210717
  Serious: Yes (Other)
  Sender: FDA-Public Use
  Company Number: CN-SA-2021SA122980

PATIENT
  Age: 63 Year
  Sex: Male
  Weight: 58.6 kg

DRUGS (4)
  1. OTERACIL POTASSIUM [Concomitant]
     Active Substance: OTERACIL POTASSIUM
     Dosage: 3 CAPSULES IN THE MORNING AND 3 CAPSULES IN THE EVENING D1?14/Q21D
     Route: 065
     Dates: start: 20210318
  2. ELOXATIN [Suspect]
     Active Substance: OXALIPLATIN
     Indication: SYMPTOMATIC TREATMENT
     Dosage: 180 MG, QD
     Route: 041
     Dates: start: 20210318, end: 20210319
  3. TEGAFUR [Concomitant]
     Active Substance: TEGAFUR
     Dosage: 3 CAPSULES IN THE MORNING AND 3 CAPSULES IN THE EVENING
     Route: 065
     Dates: start: 20210318
  4. GIMERACIL [Concomitant]
     Active Substance: GIMERACIL
     Dosage: 3 CAPSULES IN THE MORNING
     Route: 065
     Dates: start: 20210318

REACTIONS (1)
  - Paralysis [Recovering/Resolving]

NARRATIVE: CASE EVENT DATE: 20210318
